FAERS Safety Report 6761153-3 (Version None)
Quarter: 2010Q2

REPORT INFORMATION
  Report Type: 
  Country: None (occurrence: None)
  Receive Date: 20100608
  Receipt Date: 20100527
  Transmission Date: 20101027
  Serious: Yes (Other)
  Sender: FDA-Public Use
  Company Number: US-ELI_LILLY_AND_COMPANY-US201005007444

PATIENT
  Sex: Female

DRUGS (3)
  1. BYETTA [Suspect]
     Route: 058
  2. SYMLIN [Concomitant]
     Route: 058
  3. INSULIN [Concomitant]

REACTIONS (5)
  - HIP SURGERY [None]
  - OEDEMA PERIPHERAL [None]
  - OFF LABEL USE [None]
  - SWELLING [None]
  - WEIGHT DECREASED [None]
